FAERS Safety Report 16300907 (Version 2)
Quarter: 2019Q2

REPORT INFORMATION
  Report Type: Spontaneous
  Country: US (occurrence: US)
  Receive Date: 20190510
  Receipt Date: 20190515
  Transmission Date: 20190711
  Serious: Yes (Other)
  Sender: FDA-Public Use
  Company Number: US-BAUSCH-BL-2019-013745

PATIENT
  Age: 54 Year
  Sex: Male

DRUGS (18)
  1. LEUCOVORIN. [Suspect]
     Active Substance: LEUCOVORIN
     Dosage: SIXTH CYCLE- OCT 28 OF UNKNOWN YEAR
     Route: 065
  2. OXALIPLATIN. [Suspect]
     Active Substance: OXALIPLATIN
     Dosage: FOURTH CYCLE- SEP 29 OF UNKNOWN YEAR
     Route: 065
  3. FLUOROURACIL. [Suspect]
     Active Substance: FLUOROURACIL
     Dosage: FIFTH CYCLE- OCT 13 OF UNKNOWN YEAR
     Route: 065
  4. LEUCOVORIN. [Suspect]
     Active Substance: LEUCOVORIN
     Indication: METASTASES TO ABDOMINAL CAVITY
     Dosage: FIRST CYCLE- AUG 1 OF UNKNOWN YEAR
     Route: 065
  5. LEUCOVORIN. [Suspect]
     Active Substance: LEUCOVORIN
     Dosage: THIRD CYCLE- AUG 31 OF UNKNOWN YEAR
     Route: 065
  6. OXALIPLATIN. [Suspect]
     Active Substance: OXALIPLATIN
     Dosage: THIRD CYCLE- AUG 31 OF UNKNOWN YEAR
     Route: 065
  7. FLUOROURACIL. [Suspect]
     Active Substance: FLUOROURACIL
     Indication: METASTASES TO ABDOMINAL CAVITY
     Dosage: FIRST CYCLE- AUG 1 OF UNKNOWN YEAR
     Route: 065
  8. FLUOROURACIL. [Suspect]
     Active Substance: FLUOROURACIL
     Dosage: THIRD CYCLE- AUG 31 OF UNKNOWN YEAR
     Route: 065
  9. OXALIPLATIN. [Suspect]
     Active Substance: OXALIPLATIN
     Dosage: FIFTH CYCLE- OCT 13 OF UNKNOWN YEAR
     Route: 065
  10. OXALIPLATIN. [Suspect]
     Active Substance: OXALIPLATIN
     Dosage: SIXTH CYCLE- OCT 28 OF UNKNOWN YEAR
     Route: 065
  11. LEUCOVORIN. [Suspect]
     Active Substance: LEUCOVORIN
     Indication: METASTASES TO LUNG
     Dosage: SECOND CYCLE- AUG 17 OF UNKNOWN YEAR
     Route: 065
  12. LEUCOVORIN. [Suspect]
     Active Substance: LEUCOVORIN
     Dosage: FIFTH CYCLE- OCT 13 OF UNKNOWN YEAR
     Route: 065
  13. OXALIPLATIN. [Suspect]
     Active Substance: OXALIPLATIN
     Indication: METASTASES TO LUNG
     Dosage: SECOND CYCLE- AUG 17 OF UNKNOWN YEAR
     Route: 065
  14. FLUOROURACIL. [Suspect]
     Active Substance: FLUOROURACIL
     Indication: METASTASES TO LUNG
     Dosage: SECOND CYCLE- AUG 17 OF UNKNOWN YEAR
     Route: 065
  15. FLUOROURACIL. [Suspect]
     Active Substance: FLUOROURACIL
     Dosage: SIXTH CYCLE- OCT 28 OF UNKNOWN YEAR
     Route: 065
  16. FLUOROURACIL. [Suspect]
     Active Substance: FLUOROURACIL
     Dosage: FOURTH CYCLE- SEP 29 OF UNKNOWN YEAR
     Route: 065
  17. OXALIPLATIN. [Suspect]
     Active Substance: OXALIPLATIN
     Indication: METASTASES TO ABDOMINAL CAVITY
     Dosage: FIRST CYCLE- AUG 1 OF UNKNOWN YEAR
     Route: 065
  18. LEUCOVORIN. [Suspect]
     Active Substance: LEUCOVORIN
     Dosage: FOURTH CYCLE- SEP 29 OF UNKNOWN YEAR
     Route: 065

REACTIONS (1)
  - Mucosal toxicity [Not Recovered/Not Resolved]
